FAERS Safety Report 5393530-X (Version None)
Quarter: 2007Q3

REPORT INFORMATION
  Report Type: 
  Country: None (occurrence: None)
  Receive Date: 20070723
  Receipt Date: 20060731
  Transmission Date: 20080115
  Serious: No
  Sender: FDA-Public Use
  Company Number: A0614175A

PATIENT

DRUGS (1)
  1. AVANDIA [Suspect]
     Route: 048

REACTIONS (2)
  - FLUID RETENTION [None]
  - OEDEMA [None]
